FAERS Safety Report 7085930-7 (Version None)
Quarter: 2010Q4

REPORT INFORMATION
  Report Type: 
  Country: None (occurrence: None)
  Receive Date: 20101001
  Receipt Date: 20100611
  Transmission Date: 20110411
  Serious: No
  Sender: FDA-Public Use
  Company Number: 1000010748

PATIENT
  Age: 72 Year
  Sex: Female

DRUGS (13)
  1. BYSTOLIC [Suspect]
     Indication: EXTRASYSTOLES
     Dosage: 5 MG( 5 MG, 1 IN 1 D), ORAL; 10 MG (10 MG, 1 IN 1 D), ORAL
     Route: 048
     Dates: start: 20080101, end: 20091208
  2. BYSTOLIC [Suspect]
     Indication: EXTRASYSTOLES
     Dosage: 5 MG( 5 MG, 1 IN 1 D), ORAL; 10 MG (10 MG, 1 IN 1 D), ORAL
     Route: 048
     Dates: start: 20091209
  3. BYSTOLIC [Suspect]
     Indication: HYPERTENSION
     Dosage: 5 MG (5 MG, 1 IN 1 D), ORAL; 2.5 MG (2.5 MG, 1 IN 1 D), ORAL
     Route: 048
     Dates: end: 20100506
  4. BYSTOLIC [Suspect]
     Indication: HYPERTENSION
     Dosage: 5 MG (5 MG, 1 IN 1 D), ORAL; 2.5 MG (2.5 MG, 1 IN 1 D), ORAL
     Route: 048
     Dates: start: 20100507
  5. ZOLOFT [Suspect]
     Indication: DEPRESSION
     Dosage: 6.25 MG (6.25 MG, 1 IN 1 D), ORAL; 12.5 MG (12.5 MG, 1 IN 1 D), ORAL; 25 MG (25 MG, 1 IN 1 D), ORAL
     Route: 048
     Dates: start: 20091120, end: 20091121
  6. ZOLOFT [Suspect]
     Indication: DEPRESSION
     Dosage: 6.25 MG (6.25 MG, 1 IN 1 D), ORAL; 12.5 MG (12.5 MG, 1 IN 1 D), ORAL; 25 MG (25 MG, 1 IN 1 D), ORAL
     Route: 048
     Dates: start: 20091122, end: 20091123
  7. ZOLOFT [Suspect]
     Indication: DEPRESSION
     Dosage: 6.25 MG (6.25 MG, 1 IN 1 D), ORAL; 12.5 MG (12.5 MG, 1 IN 1 D), ORAL; 25 MG (25 MG, 1 IN 1 D), ORAL
     Route: 048
     Dates: start: 20091124, end: 20091124
  8. SYNTHROID [Concomitant]
  9. BUTALBITAL [Concomitant]
  10. BLUEBERRY EXTRACT [Concomitant]
  11. GINKGO BILOBA [Concomitant]
  12. MULTI-VITAMIN [Concomitant]
  13. CALCIUM WITH VITAMIN D [Concomitant]

REACTIONS (4)
  - ASTHENIA [None]
  - DRUG INEFFECTIVE [None]
  - EXTRASYSTOLES [None]
  - TREMOR [None]
